FAERS Safety Report 9943815 (Version 1)
Quarter: 2014Q1

REPORT INFORMATION
  Report Type: Spontaneous
  Country: TN (occurrence: TN)
  Receive Date: 20140303
  Receipt Date: 20140303
  Transmission Date: 20141002
  Serious: Yes (Death)
  Sender: FDA-Public Use
  Company Number: TN-BAXTER-2014BAX009289

PATIENT
  Age: 19 Year
  Sex: Female

DRUGS (4)
  1. FEIBA NF 500 U [Suspect]
     Indication: HAEMORRHAGE
     Dosage: 1 DOSE ON POST PARTUM DAY 8
     Route: 065
  2. ENDOXAN 1G [Suspect]
     Indication: PRODUCT USED FOR UNKNOWN INDICATION
     Route: 065
  3. NOVOSEVEN RECOMBINANT FACTOR VIIA [Suspect]
     Indication: HAEMORRHAGE
     Dosage: 2 DOSES AND 1 DOSE ON POST PARTUM DAY 6
     Route: 065
  4. PREDNISONE [Suspect]
     Indication: PRODUCT USED FOR UNKNOWN INDICATION
     Route: 065

REACTIONS (1)
  - Shock haemorrhagic [Fatal]
